FAERS Safety Report 21397034 (Version 2)
Quarter: 2022Q3

REPORT INFORMATION
  Report Type: Spontaneous
  Country: ZA (occurrence: ZA)
  Receive Date: 20220930
  Receipt Date: 20220930
  Transmission Date: 20221027
  Serious: Yes (Other)
  Sender: FDA-Public Use
  Company Number: ZA-009507513-2209ZAF008622

PATIENT

DRUGS (2)
  1. BRIDION [Suspect]
     Active Substance: SUGAMMADEX
  2. NEOSTIGMINE [Suspect]
     Active Substance: NEOSTIGMINE

REACTIONS (30)
  - Pneumonia [Unknown]
  - Pneumothorax [Unknown]
  - Pneumonitis [Unknown]
  - Acute respiratory failure [Unknown]
  - Lung abscess [Unknown]
  - Pneumonia adenoviral [Unknown]
  - Pneumonia bacterial [Unknown]
  - Congenital pneumonia [Unknown]
  - HIV infection [Unknown]
  - Pneumocystis jirovecii pneumonia [Unknown]
  - Pneumonia influenzal [Unknown]
  - Pneumonia viral [Unknown]
  - Pneumonia parainfluenzae viral [Unknown]
  - Pneumonia haemophilus [Unknown]
  - Pneumonia klebsiella [Unknown]
  - Pneumonia streptococcal [Unknown]
  - Pneumonia pseudomonal [Unknown]
  - Pneumonia staphylococcal [Unknown]
  - Pneumonia respiratory syncytial viral [Unknown]
  - Pneumococcal sepsis [Unknown]
  - Pneumonitis chemical [Unknown]
  - Bronchitis chemical [Unknown]
  - Pneumothorax spontaneous [Unknown]
  - Pulmonary embolism [Unknown]
  - Cor pulmonale acute [Unknown]
  - Traumatic haemothorax [Unknown]
  - Chest injury [Unknown]
  - Respiratory failure [Unknown]
  - Traumatic lung injury [Unknown]
  - Influenza virus test positive [Unknown]
